FAERS Safety Report 8883381 (Version 1)
Quarter: 2012Q4

REPORT INFORMATION
  Report Type: 
  Country: US (occurrence: US)
  Receive Date: 20121102
  Receipt Date: 20121102
  Transmission Date: 20130627
  Serious: Yes (Other)
  Sender: FDA-Public Use
  Company Number: US-009507513-1211USA000566

PATIENT
  Age: 64 None
  Sex: Female
  Weight: 79.82 kg

DRUGS (11)
  1. ZETIA [Suspect]
     Indication: BLOOD CHOLESTEROL INCREASED
     Dosage: UNK
     Route: 048
     Dates: start: 201207
  2. NIASPAN [Suspect]
     Indication: BLOOD CHOLESTEROL INCREASED
     Dosage: UNK, hs 100-2
     Route: 048
     Dates: start: 201106, end: 201207
  3. ANTIMICROBIAL (UNSPECIFIED) [Suspect]
  4. CRESTOR [Concomitant]
     Dosage: 40 mg, UNK
     Route: 048
  5. ASPIRIN [Concomitant]
     Dosage: 81 mg, 1 in 1 D
     Route: 048
  6. RITALIN [Concomitant]
     Dosage: 10 mg, qd
     Route: 048
  7. PENTASA [Concomitant]
     Dosage: 500 mg, qd
     Route: 048
  8. DEXILANT [Concomitant]
     Dosage: UNK
     Route: 048
  9. ERGOCALCIFEROL [Concomitant]
     Dosage: 5000 IU, qd
     Route: 048
  10. BENADRYL [Concomitant]
     Dosage: 1 DF, qd
     Route: 048
  11. QVAR [Concomitant]
     Indication: DYSPNOEA
     Dosage: UNK, prn
     Route: 055

REACTIONS (6)
  - Herpes zoster [Recovered/Resolved]
  - Drug hypersensitivity [Recovered/Resolved]
  - Pruritus allergic [Recovered/Resolved]
  - Pruritus generalised [Recovered/Resolved]
  - Pain [Recovered/Resolved]
  - Blood cholesterol increased [Unknown]
